FAERS Safety Report 9563784 (Version 2)
Quarter: 2014Q2

REPORT INFORMATION
  Report Type: Spontaneous
  Country: US (occurrence: None)
  Receive Date: 20130926
  Receipt Date: 20140408
  Transmission Date: 20141212
  Serious: Yes (Other)
  Sender: FDA-Public Use
  Company Number: 2013-US-000940

PATIENT
  Age: 48 Year
  Sex: Male

DRUGS (4)
  1. XYREM [Suspect]
     Indication: NARCOLEPSY
     Route: 048
     Dates: start: 20041111, end: 200503
  2. RITALIN [Concomitant]
  3. DEXEDRINE (DEXAMFETAMINE SULFATE) [Concomitant]
  4. HYDROCODONE (HYDROCODONE BITARTRATE) [Concomitant]

REACTIONS (3)
  - Sleep apnoea syndrome [None]
  - Hypersomnia [None]
  - Rapid eye movements sleep abnormal [None]
